FAERS Safety Report 11784807 (Version 3)
Quarter: 2018Q4

REPORT INFORMATION
  Report Type: Spontaneous
  Country: AU (occurrence: AU)
  Receive Date: 20151130
  Receipt Date: 20181127
  Transmission Date: 20190204
  Serious: Yes (Disabling, Other)
  Sender: FDA-Public Use
  Company Number: AU-ROCHE-1668002

PATIENT
  Sex: Female

DRUGS (6)
  1. AVASTIN [Suspect]
     Active Substance: BEVACIZUMAB
     Route: 042
  2. PARACETAMOL [Concomitant]
     Active Substance: ACETAMINOPHEN
     Route: 065
  3. PREGABALIN. [Concomitant]
     Active Substance: PREGABALIN
     Route: 065
  4. MUPIROCIN UNG [Concomitant]
     Dosage: 2%
     Route: 065
  5. ONDANSETRON [Concomitant]
     Active Substance: ONDANSETRON
     Route: 065
  6. AVASTIN [Suspect]
     Active Substance: BEVACIZUMAB
     Indication: NEUROFIBROMATOSIS
     Dosage: 100 MG VIAL
     Route: 042

REACTIONS (5)
  - Off label use [Unknown]
  - Weight decreased [Unknown]
  - Mental disorder [Unknown]
  - Hypoacusis [Unknown]
  - Intentional product use issue [Unknown]
